FAERS Safety Report 22621174 (Version 1)
Quarter: 2023Q2

REPORT INFORMATION
  Report Type: Spontaneous
  Country: US (occurrence: None)
  Receive Date: 20230616
  Receipt Date: 20230616
  Transmission Date: 20230722
  Serious: No
  Sender: FDA-Public Use
  Company Number: None

PATIENT
  Sex: Female

DRUGS (1)
  1. CAPECITABINE [Suspect]
     Active Substance: CAPECITABINE
     Indication: Breast cancer female
     Dosage: FREQUENCY : TWICE A DAY;?
     Route: 048
     Dates: start: 20230516

REACTIONS (7)
  - Nausea [None]
  - Bone pain [None]
  - Red blood cell count decreased [None]
  - Transfusion [None]
  - Eye pain [None]
  - Gait disturbance [None]
  - Hypotension [None]
